FAERS Safety Report 17282105 (Version 1)
Quarter: 2020Q1

REPORT INFORMATION
  Report Type: Spontaneous
  Country: US (occurrence: US)
  Receive Date: 20200116
  Receipt Date: 20200116
  Transmission Date: 20200409
  Serious: No
  Sender: FDA-Public Use
  Company Number: None

PATIENT

DRUGS (2)
  1. PRAVASTATIN. [Suspect]
     Active Substance: PRAVASTATIN
  2. SIMVASTATIN. [Suspect]
     Active Substance: SIMVASTATIN

REACTIONS (2)
  - Myalgia [None]
  - Pain in extremity [None]
